FAERS Safety Report 11596471 (Version 1)
Quarter: 2015Q4

REPORT INFORMATION
  Report Type: Spontaneous
  Country: CA (occurrence: CA)
  Receive Date: 20151006
  Receipt Date: 20151006
  Transmission Date: 20160304
  Serious: Yes (Other)
  Sender: FDA-Public Use
  Company Number: CA-TEVA-598020ACC

PATIENT
  Age: 61 Year
  Sex: Female
  Weight: 83 kg

DRUGS (9)
  1. CYCLOBENZAPRINE [Concomitant]
     Active Substance: CYCLOBENZAPRINE
  2. TELMISARTAN. [Concomitant]
     Active Substance: TELMISARTAN
  3. ALENDRONATE [Concomitant]
     Active Substance: ALENDRONATE SODIUM
  4. CALCITE 500 D 400 [Concomitant]
  5. ATORVASTATIN [Suspect]
     Active Substance: ATORVASTATIN
     Indication: DYSLIPIDAEMIA
     Dosage: 10 MILLIGRAM DAILY;
     Route: 048
  6. AMLODIPINE [Concomitant]
     Active Substance: AMLODIPINE BESYLATE
  7. PREMARIN [Concomitant]
     Active Substance: ESTROGENS, CONJUGATED
  8. ACETAMINOPHEN. [Concomitant]
     Active Substance: ACETAMINOPHEN
  9. RIVASA FC [Concomitant]

REACTIONS (4)
  - Headache [Recovered/Resolved]
  - Throat tightness [Recovered/Resolved]
  - Abdominal distension [Recovered/Resolved]
  - Malaise [Recovered/Resolved]
